FAERS Safety Report 7319323-1 (Version None)
Quarter: 2011Q1

REPORT INFORMATION
  Report Type: 
  Country: None (occurrence: None)
  Receive Date: 20110223
  Receipt Date: 20110223
  Transmission Date: 20110831
  Serious: Yes (Life-Threatening, Hospitalization)
  Sender: FDA-Public Use
  Company Number: None

PATIENT
  Age: 65 Year
  Sex: Male
  Weight: 64.8644 kg

DRUGS (3)
  1. FLUROROURACIL 50MG/ML APP PHARMACEUTICALS [Suspect]
     Indication: ADENOCARCINOMA
     Dosage: 1000MG/M2/DAY Q28D OVER 96 HR IV
     Route: 042
     Dates: start: 20101206, end: 20110107
  2. CISPLATIN [Suspect]
     Indication: OESOPHAGEAL ADENOCARCINOMA
     Dosage: 80MG/M2 Q28D IV
     Route: 042
     Dates: start: 20101206, end: 20110103
  3. PANITUMUMAB [Concomitant]

REACTIONS (8)
  - DIARRHOEA [None]
  - HYPERBILIRUBINAEMIA [None]
  - RENAL INJURY [None]
  - FATIGUE [None]
  - DUODENAL ULCER HAEMORRHAGE [None]
  - DYSPNOEA [None]
  - HAEMOGLOBIN DECREASED [None]
  - CARDIAC ARREST [None]
